FAERS Safety Report 8243783-5 (Version None)
Quarter: 2012Q1

REPORT INFORMATION
  Report Type: 
  Country: None (occurrence: None)
  Receive Date: 20120329
  Receipt Date: 20111117
  Transmission Date: 20120608
  Serious: No
  Sender: FDA-Public Use
  Company Number: US-MYLANLABS-2011S1022224

PATIENT
  Age: 32 Year
  Sex: Female
  Weight: 58.97 kg

DRUGS (2)
  1. ALPRAZOLAM [Concomitant]
  2. EMSAM [Suspect]
     Indication: DEPRESSION
     Dosage: CHANGED Q24H
     Route: 062
     Dates: start: 20111002, end: 20111005

REACTIONS (3)
  - AGITATION [None]
  - TACHYCARDIA [None]
  - NAUSEA [None]
